FAERS Safety Report 14865866 (Version 1)
Quarter: 2018Q2

REPORT INFORMATION
  Report Type: Report from Study
  Country: GB (occurrence: GB)
  Receive Date: 20180508
  Receipt Date: 20180508
  Transmission Date: 20180711
  Serious: Yes (Other)
  Sender: FDA-Public Use
  Company Number: GB-BEH-2018090076

PATIENT
  Weight: 3.5 kg

DRUGS (5)
  1. RIASTAP [Suspect]
     Active Substance: FIBRINOGEN HUMAN
     Indication: HAEMORRHAGE PROPHYLAXIS
     Dosage: UNK
     Route: 065
     Dates: start: 20160701
  2. RIASTAP [Suspect]
     Active Substance: FIBRINOGEN HUMAN
     Indication: NORWOOD PROCEDURE
  3. HEPARIN [Concomitant]
     Active Substance: HEPARIN SODIUM
     Dosage: UNK
     Route: 065
     Dates: start: 201607, end: 201607
  4. RIASTAP [Suspect]
     Active Substance: FIBRINOGEN HUMAN
     Indication: CARDIOPULMONARY BYPASS
  5. HEPARIN [Concomitant]
     Active Substance: HEPARIN SODIUM
     Dosage: UNK
     Route: 065
     Dates: end: 201607

REACTIONS (3)
  - Anti factor X activity increased [Recovered/Resolved]
  - Shunt occlusion [Recovered/Resolved]
  - Supraventricular tachycardia [Recovered/Resolved]

NARRATIVE: CASE EVENT DATE: 20160701
